FAERS Safety Report 24387379 (Version 1)
Quarter: 2024Q4

REPORT INFORMATION
  Report Type: Spontaneous
  Country: US (occurrence: US)
  Receive Date: 20241002
  Receipt Date: 20241002
  Transmission Date: 20250114
  Serious: Yes (Life-Threatening, Other)
  Sender: PFIZER
  Company Number: US-PFIZER INC-PV202400127367

PATIENT
  Age: 81 Year
  Sex: Male

DRUGS (2)
  1. METHYLPREDNISOLONE ACETATE [Suspect]
     Active Substance: METHYLPREDNISOLONE ACETATE
     Indication: Myocarditis
     Dosage: 1000 MG FOR 3 DAYS (HIGH-DOSE)
  2. PREDNISONE [Suspect]
     Active Substance: PREDNISONE
     Indication: Myocarditis
     Dosage: 60 MG, DAILY

REACTIONS (3)
  - Myasthenia gravis [Unknown]
  - Drug ineffective for unapproved indication [Unknown]
  - Off label use [Unknown]
